FAERS Safety Report 8206383-9 (Version None)
Quarter: 2012Q1

REPORT INFORMATION
  Report Type: 
  Country: None (occurrence: None)
  Receive Date: 20120313
  Receipt Date: 20120308
  Transmission Date: 20120608
  Serious: Yes (Death, Other)
  Sender: FDA-Public Use
  Company Number: PHHY2012MX020501

PATIENT
  Sex: Male

DRUGS (4)
  1. EXELON [Suspect]
     Indication: DEMENTIA ALZHEIMER'S TYPE
     Dosage: 1 PATCH (9.5 MG/10 CM2) DAILY
     Route: 062
     Dates: start: 20110301, end: 20120126
  2. MACRODANTINA [Concomitant]
     Indication: URINARY TRACT INFECTION
     Dosage: 1 DF, UNK
  3. HALCION [Concomitant]
     Indication: SLEEP DISORDER
     Dosage: 1 DF, UNK
  4. SINOGAN [Concomitant]
     Indication: SLEEP DISORDER
     Dosage: 0.5 DF, UNK

REACTIONS (5)
  - DEMENTIA ALZHEIMER'S TYPE [None]
  - NERVOUS SYSTEM DISORDER [None]
  - DISEASE PROGRESSION [None]
  - ATROPHY [None]
  - GENERAL PHYSICAL HEALTH DETERIORATION [None]
